FAERS Safety Report 24262405 (Version 1)
Quarter: 2024Q3

REPORT INFORMATION
  Report Type: Spontaneous
  Country: US (occurrence: US)
  Receive Date: 20240829
  Receipt Date: 20240829
  Transmission Date: 20241016
  Serious: Yes (Life-Threatening, Hospitalization, Other)
  Sender: GRANULES INDIA
  Company Number: US-GRANULES-US-2024GRALIT00371

PATIENT
  Age: 15 Year
  Sex: Male

DRUGS (1)
  1. ACETAMINOPHEN [Suspect]
     Active Substance: ACETAMINOPHEN
     Indication: Product used for unknown indication
     Route: 048

REACTIONS (7)
  - Mental status changes [Recovering/Resolving]
  - International normalised ratio increased [Recovering/Resolving]
  - Blood lactic acid increased [Recovering/Resolving]
  - Hypertransaminasaemia [Recovering/Resolving]
  - Condition aggravated [Recovering/Resolving]
  - Toxicity to various agents [Recovering/Resolving]
  - Overdose [Unknown]
